FAERS Safety Report 8900413 (Version 2)
Quarter: 2012Q4

REPORT INFORMATION
  Report Type: 
  Country: US (occurrence: US)
  Receive Date: 20121109
  Receipt Date: 20121206
  Transmission Date: 20130627
  Serious: Yes (Other)
  Sender: FDA-Public Use
  Company Number: US-JNJFOC-20121103403

PATIENT
  Sex: Female
  Weight: 72.58 kg

DRUGS (4)
  1. STELARA [Suspect]
     Indication: PSORIASIS
     Dosage: seven injections received
     Route: 058
     Dates: start: 20110222, end: 20120717
  2. RESTASIS [Concomitant]
     Route: 001
  3. MULTIPLE VITAMINS [Concomitant]
     Route: 048
  4. ESTROGEN [Concomitant]
     Route: 062

REACTIONS (1)
  - Lung neoplasm malignant [Unknown]
